FAERS Safety Report 5081069-0 (Version None)
Quarter: 2006Q3

REPORT INFORMATION
  Report Type: 
  Country: None (occurrence: None)
  Receive Date: 20060720
  Receipt Date: 20051227
  Transmission Date: 20061208
  Serious: Yes (Other)
  Sender: FDA-Public Use
  Company Number: 2005173640

PATIENT
  Sex: Female
  Weight: 95.2554 kg

DRUGS (8)
  1. CELEBREX [Suspect]
     Indication: OSTEOARTHRITIS
     Dosage: 200 MG (200 MG,1 IN 1 D),ORAL
     Route: 048
  2. CELEBREX [Suspect]
     Indication: PSORIATIC ARTHROPATHY
     Dosage: 200 MG (200 MG,1 IN 1 D),ORAL
     Route: 048
  3. LASIX [Concomitant]
  4. LISINOPRIL [Concomitant]
  5. DIGOXIN [Concomitant]
  6. VITAMIN D [Concomitant]
  7. TOPROL-XL [Concomitant]
  8. CALCIUM (CALCIUM) [Concomitant]

REACTIONS (6)
  - CARDIAC FAILURE CONGESTIVE [None]
  - DYSPNOEA [None]
  - FLUID RETENTION [None]
  - JOINT STIFFNESS [None]
  - OEDEMA PERIPHERAL [None]
  - WEIGHT INCREASED [None]
